FAERS Safety Report 8809744 (Version 1)
Quarter: 2012Q4

REPORT INFORMATION
  Report Type: 
  Country: US (occurrence: US)
  Receive Date: 20120926
  Receipt Date: 20120926
  Transmission Date: 20130627
  Serious: Yes (Death)
  Sender: FDA-Public Use
  Company Number: US-ROCHE-1128454

PATIENT
  Sex: Female

DRUGS (4)
  1. AVASTIN [Suspect]
     Indication: COLON CANCER
     Route: 065
     Dates: start: 20050608, end: 20060510
  2. CPT-11 [Concomitant]
     Route: 065
     Dates: start: 20050608, end: 20060510
  3. 5-FLUOROURACIL [Concomitant]
  4. LEUCOVORIN [Concomitant]

REACTIONS (2)
  - Death [Fatal]
  - Carcinoembryonic antigen increased [Unknown]
